FAERS Safety Report 7938099-8 (Version None)
Quarter: 2011Q4

REPORT INFORMATION
  Report Type: 
  Country: None (occurrence: None)
  Receive Date: 20111123
  Receipt Date: 20111118
  Transmission Date: 20120403
  Serious: Yes (Death, Hospitalization)
  Sender: FDA-Public Use
  Company Number: GB-PFIZER INC-IDA-00489

PATIENT
  Age: 21 Year
  Sex: Male

DRUGS (2)
  1. PROPRANOLOL HCL [Suspect]
     Dosage: 80 MG TABLET-10 DF, SINGLE
     Route: 039
  2. DILTIAZEM [Suspect]
     Dosage: 60 MG TABLET-25 DF, SINGLE
     Route: 048

REACTIONS (8)
  - DEPRESSED LEVEL OF CONSCIOUSNESS [None]
  - HEART RATE DECREASED [None]
  - INTENTIONAL OVERDOSE [None]
  - SUICIDAL BEHAVIOUR [None]
  - BLOOD PRESSURE IMMEASURABLE [None]
  - INTENTIONAL DRUG MISUSE [None]
  - PUPIL FIXED [None]
  - CARDIAC FAILURE ACUTE [None]
